FAERS Safety Report 8118488-1 (Version None)
Quarter: 2012Q1

REPORT INFORMATION
  Report Type: 
  Country: None (occurrence: None)
  Receive Date: 20120207
  Receipt Date: 20120203
  Transmission Date: 20120608
  Serious: Yes (Hospitalization, Other)
  Sender: FDA-Public Use
  Company Number: IT-PFIZER INC-2012019172

PATIENT
  Age: 53 Year
  Sex: Male

DRUGS (2)
  1. CYTARABINE [Suspect]
     Indication: NON-HODGKIN'S LYMPHOMA
     Dosage: 4000 MG, DAILY
     Route: 042
     Dates: start: 20110924
  2. CISPLATIN [Concomitant]
     Dosage: 200 MG, UNK
     Route: 042
     Dates: start: 20110923

REACTIONS (2)
  - SHOCK [None]
  - TUMOUR LYSIS SYNDROME [None]
